FAERS Safety Report 15889876 (Version 1)
Quarter: 2019Q1

REPORT INFORMATION
  Report Type: Spontaneous
  Country: AR (occurrence: AR)
  Receive Date: 20190130
  Receipt Date: 20190130
  Transmission Date: 20190417
  Serious: Yes (Other)
  Sender: FDA-Public Use
  Company Number: AR-PFIZER INC-2019035516

PATIENT
  Age: 46 Year
  Sex: Female

DRUGS (1)
  1. XELJANZ [Suspect]
     Active Substance: TOFACITINIB CITRATE
     Indication: RHEUMATOID ARTHRITIS
     Dosage: 5 MG, 2X/DAY
     Dates: start: 20180704

REACTIONS (5)
  - Joint injury [Recovering/Resolving]
  - Abdominal discomfort [Unknown]
  - Enterocolitis [Unknown]
  - Peripheral swelling [Unknown]
  - Joint range of motion decreased [Recovering/Resolving]

NARRATIVE: CASE EVENT DATE: 2018
